FAERS Safety Report 9866065 (Version 1)
Quarter: 2014Q1

REPORT INFORMATION
  Report Type: Spontaneous
  Country: US (occurrence: US)
  Receive Date: 20140203
  Receipt Date: 20140203
  Transmission Date: 20141002
  Serious: No
  Sender: FDA-Public Use
  Company Number: US-ALLERGAN-1316688US

PATIENT
  Age: 60 Year
  Sex: Female

DRUGS (3)
  1. RESTASIS [Suspect]
     Indication: DRY EYE
     Dosage: 2 GTT, BID
     Route: 047
     Dates: start: 201304
  2. REFRESH PLUS [Concomitant]
     Indication: DRY EYE
  3. OTHER EYE DROP [Concomitant]
     Indication: DRY EYE

REACTIONS (3)
  - Drug dose omission [Unknown]
  - Therapeutic response decreased [Unknown]
  - Scleral hyperaemia [Unknown]
